FAERS Safety Report 16402097 (Version 2)
Quarter: 2019Q3

REPORT INFORMATION
  Report Type: Report from Study
  Country: BR (occurrence: BR)
  Receive Date: 20190607
  Receipt Date: 20190729
  Transmission Date: 20191004
  Serious: Yes (Other)
  Sender: FDA-Public Use
  Company Number: BR-TEVA-2019-BR-1059334

PATIENT
  Age: 54 Year
  Sex: Female

DRUGS (2)
  1. LOSARTAN 50 MG [Concomitant]
     Active Substance: LOSARTAN
     Route: 065
  2. COPAXONE [Suspect]
     Active Substance: GLATIRAMER ACETATE
     Indication: RELAPSING-REMITTING MULTIPLE SCLEROSIS
     Route: 065
     Dates: start: 20190129

REACTIONS (10)
  - Myocardial infarction [Recovered/Resolved]
  - Cardiac discomfort [Recovered/Resolved]
  - Vomiting [Recovered/Resolved]
  - Chest discomfort [Recovered/Resolved]
  - Spinal disorder [Recovered/Resolved]
  - Dysarthria [Recovered/Resolved]
  - Terminal state [Recovered/Resolved]
  - Aptyalism [Recovered/Resolved]
  - Apparent death [Recovered/Resolved]
  - Head discomfort [Recovered/Resolved]

NARRATIVE: CASE EVENT DATE: 20190528
